FAERS Safety Report 4765661-6 (Version None)
Quarter: 2005Q3

REPORT INFORMATION
  Report Type: 
  Country: None (occurrence: None)
  Receive Date: 20050908
  Receipt Date: 20050908
  Transmission Date: 20060218
  Serious: Yes (Death, Hospitalization, Other)
  Sender: FDA-Public Use
  Company Number: None

PATIENT
  Age: 47 Year
  Sex: Male
  Weight: 45.8133 kg

DRUGS (2)
  1. HALDOL [Suspect]
     Indication: TREATMENT NONCOMPLIANCE
     Dates: start: 20050711, end: 20050715
  2. RISPERDAL [Suspect]
     Indication: NERVOUSNESS
     Dates: start: 20050715, end: 20050720

REACTIONS (9)
  - ASTHENIA [None]
  - DYSKINESIA [None]
  - MALAISE [None]
  - ORAL INTAKE REDUCED [None]
  - PYREXIA [None]
  - SPEECH DISORDER [None]
  - STARVATION [None]
  - TONGUE PARALYSIS [None]
  - TREMOR [None]
